FAERS Safety Report 4920493-0 (Version None)
Quarter: 2006Q1

REPORT INFORMATION
  Report Type: 
  Country: None (occurrence: None)
  Receive Date: 20060223
  Receipt Date: 20051013
  Transmission Date: 20060701
  Serious: Yes (Hospitalization)
  Sender: FDA-Public Use
  Company Number: US-MERCK-0510USA07012

PATIENT
  Age: 69 Year
  Sex: Male
  Weight: 93 kg

DRUGS (2)
  1. VIOXX [Suspect]
     Indication: SPONDYLITIS
     Route: 048
     Dates: start: 20010512, end: 20040612
  2. VIOXX [Suspect]
     Indication: MONARTHRITIS
     Route: 048
     Dates: start: 20010512, end: 20040612

REACTIONS (15)
  - ABSCESS NECK [None]
  - ATRIAL FIBRILLATION [None]
  - CEREBRAL INFARCTION [None]
  - COORDINATION ABNORMAL [None]
  - DEPRESSION [None]
  - EROSIVE DUODENITIS [None]
  - GASTRITIS EROSIVE [None]
  - HYPERHOMOCYSTEINAEMIA [None]
  - HYPERKERATOSIS [None]
  - HYPOAESTHESIA [None]
  - MASS [None]
  - PNEUMONIA ASPIRATION [None]
  - POLYP [None]
  - ROAD TRAFFIC ACCIDENT [None]
  - VERTEBROBASILAR INSUFFICIENCY [None]
